FAERS Safety Report 6725384-0 (Version None)
Quarter: 2010Q2

REPORT INFORMATION
  Report Type: 
  Country: None (occurrence: None)
  Receive Date: 20100514
  Receipt Date: 20100430
  Transmission Date: 20101027
  Serious: Yes (Hospitalization, Other)
  Sender: FDA-Public Use
  Company Number: US-ELI_LILLY_AND_COMPANY-US201005000298

PATIENT
  Sex: Female

DRUGS (10)
  1. FORTEO [Suspect]
     Indication: OSTEOPOROSIS
     Dosage: 20 UG, DAILY (1/D)
  2. CITALOPRAM [Concomitant]
     Dosage: 10 MG, DAILY (1/D)
  3. OMEPRAZOLE [Concomitant]
     Dosage: 20 MG, DAILY (1/D)
  4. PLAQUENIL [Concomitant]
     Dosage: 200 MG, 2/D
  5. FOLIC ACID [Concomitant]
     Dosage: 1 MG, DAILY (1/D)
  6. SIMVASTATIN [Concomitant]
     Dosage: 10 MG, DAILY (1/D)
  7. FLEXERIL [Concomitant]
     Dosage: 10 MG, DAILY (1/D)
  8. ATENOLOL [Concomitant]
     Dosage: 25 MG, DAILY (1/D)
  9. METHOTREXATE [Concomitant]
     Dosage: 12.5 MG, WEEKLY (1/W)
  10. TRAZODONE [Concomitant]
     Dosage: 100 MG, 2/D

REACTIONS (5)
  - FALL [None]
  - HIP FRACTURE [None]
  - HYPOAESTHESIA [None]
  - PAIN [None]
  - PELVIC FRACTURE [None]
